FAERS Safety Report 22111877 (Version 1)
Quarter: 2023Q1

REPORT INFORMATION
  Report Type: Spontaneous
  Country: US (occurrence: US)
  Receive Date: 20230318
  Receipt Date: 20230318
  Transmission Date: 20230418
  Serious: Yes (Hospitalization, Disabling, Other)
  Sender: FDA-Public Use
  Company Number: US-TEVA-406510USA

PATIENT
  Age: 58 Year
  Sex: Female

DRUGS (4)
  1. ALENDRONATE SODIUM [Suspect]
     Active Substance: ALENDRONATE SODIUM
     Indication: Product used for unknown indication
     Route: 065
     Dates: start: 200803, end: 200805
  2. FOSAMAX [Suspect]
     Active Substance: ALENDRONATE SODIUM
     Indication: Product used for unknown indication
     Route: 065
     Dates: start: 200307, end: 2009
  3. FOSAMAX [Suspect]
     Active Substance: ALENDRONATE SODIUM
     Route: 065
     Dates: start: 2009, end: 2010
  4. FOSAMAX [Suspect]
     Active Substance: ALENDRONATE SODIUM
     Route: 065
     Dates: start: 2010, end: 201102

REACTIONS (3)
  - Femur fracture [Unknown]
  - Bone disorder [Unknown]
  - Low turnover osteopathy [Unknown]

NARRATIVE: CASE EVENT DATE: 20120422
